FAERS Safety Report 24774137 (Version 3)
Quarter: 2025Q3

REPORT INFORMATION
  Report Type: Spontaneous
  Country: US (occurrence: US)
  Receive Date: 20241225
  Receipt Date: 20250930
  Transmission Date: 20251021
  Serious: Yes (Hospitalization)
  Sender: SANOFI AVENTIS
  Company Number: US-SA-2024SA379964

PATIENT
  Age: 47 Year
  Sex: Female

DRUGS (25)
  1. DUPIXENT [Suspect]
     Active Substance: DUPILUMAB
     Indication: Asthma
     Dosage: 300 MG, QOW
     Route: 058
     Dates: start: 20210415
  2. ALBUTEROL [Concomitant]
     Active Substance: ALBUTEROL
  3. AMLODIPINE BESYLATE\BENAZEPRIL HYDROCHLORIDE [Concomitant]
     Active Substance: AMLODIPINE BESYLATE\BENAZEPRIL HYDROCHLORIDE
  4. AMLODIPINE [Concomitant]
     Active Substance: AMLODIPINE BESYLATE
  5. ATORVASTATIN [Concomitant]
     Active Substance: ATORVASTATIN
  6. AZITHROMYCIN [Concomitant]
     Active Substance: AZITHROMYCIN
  7. BASAGLAR [Concomitant]
     Active Substance: INSULIN GLARGINE
  8. BENZONATATE [Concomitant]
     Active Substance: BENZONATATE
  9. BUPROPION [Concomitant]
     Active Substance: BUPROPION
  10. DICLOFENAC [Concomitant]
     Active Substance: DICLOFENAC
  11. FARXIGA [Concomitant]
     Active Substance: DAPAGLIFLOZIN PROPANEDIOL
  12. LEVOTHYROXINE [Concomitant]
     Active Substance: LEVOTHYROXINE
  13. LORATADINE [Concomitant]
     Active Substance: LORATADINE
  14. MONTELUKAST [Concomitant]
     Active Substance: MONTELUKAST
  15. OZEMPIC [Concomitant]
     Active Substance: SEMAGLUTIDE
  16. PREDNISONE [Concomitant]
     Active Substance: PREDNISONE
  17. SUMATRIPTAN [Concomitant]
     Active Substance: SUMATRIPTAN
  18. TRIAMCINOLONE [Concomitant]
     Active Substance: TRIAMCINOLONE
  19. VENLAFAXINE [Concomitant]
     Active Substance: VENLAFAXINE HYDROCHLORIDE
  20. VALSARTAN [Concomitant]
     Active Substance: VALSARTAN
  21. DAPAGLIFLOZIN [Concomitant]
     Active Substance: DAPAGLIFLOZIN
  22. IRBESARTAN [Concomitant]
     Active Substance: IRBESARTAN
  23. CHLORTHALIDONE [Concomitant]
     Active Substance: CHLORTHALIDONE
  24. METHOCARBAMOL [Concomitant]
     Active Substance: METHOCARBAMOL
  25. KERENDIA [Concomitant]
     Active Substance: FINERENONE

REACTIONS (3)
  - Surgery [Unknown]
  - Asthma [Unknown]
  - Drug ineffective [Unknown]

NARRATIVE: CASE EVENT DATE: 20241101
